FAERS Safety Report 5011757-3 (Version None)
Quarter: 2006Q2

REPORT INFORMATION
  Report Type: 
  Country: None (occurrence: None)
  Receive Date: 20060526
  Receipt Date: 20060515
  Transmission Date: 20061013
  Serious: Yes (Hospitalization)
  Sender: FDA-Public Use
  Company Number: FR-JNJFOC-20060505593

PATIENT
  Age: 2 Decade
  Sex: Female
  Weight: 60 kg

DRUGS (9)
  1. REMICADE [Suspect]
     Route: 042
  2. REMICADE [Suspect]
     Route: 042
  3. REMICADE [Suspect]
     Route: 042
  4. REMICADE [Suspect]
     Route: 042
  5. REMICADE [Suspect]
     Indication: CROHN'S DISEASE
     Route: 042
  6. METHOTREXATE [Concomitant]
     Indication: CROHN'S DISEASE
     Route: 065
  7. LAROXYL [Concomitant]
     Indication: ANXIETY
     Route: 065
  8. PRAZEPAM [Concomitant]
     Indication: ANXIETY
     Route: 065
  9. LANSOPRAZOLE [Concomitant]
     Route: 065

REACTIONS (4)
  - ABDOMINAL PAIN [None]
  - DIARRHOEA [None]
  - PYREXIA [None]
  - VOMITING [None]
